FAERS Safety Report 5241910-5 (Version None)
Quarter: 2007Q1

REPORT INFORMATION
  Report Type: 
  Country: None (occurrence: None)
  Receive Date: 20070220
  Receipt Date: 20070206
  Transmission Date: 20070707
  Serious: Yes (Death)
  Sender: FDA-Public Use
  Company Number: US-SHR-US-2006-039197

PATIENT
  Age: 46 Year
  Sex: Female

DRUGS (6)
  1. BETASERON [Suspect]
     Indication: RELAPSING-REMITTING MULTIPLE SCLEROSIS
     Dosage: 8 MIU, UNK
     Route: 058
     Dates: start: 20041001, end: 20050321
  2. BETASERON [Suspect]
     Dosage: UNK, UNK
     Route: 058
     Dates: start: 20050520, end: 20061017
  3. MOBIC [Concomitant]
     Indication: PAIN
     Dosage: 15 MG, UNK
     Route: 048
  4. PROZAC [Concomitant]
     Indication: DEPRESSION
     Dosage: 10 MG, UNK
     Route: 048
  5. SYNTHROID [Concomitant]
     Indication: HYPOTHYROIDISM
     Dosage: 150 MG, UNK
     Route: 048
  6. ANALGESICS [Concomitant]
     Indication: PAIN
     Dosage: 60 MG, UNK
     Route: 048

REACTIONS (2)
  - ALCOHOLISM [None]
  - OVERDOSE [None]
